FAERS Safety Report 5485225-9 (Version None)
Quarter: 2007Q4

REPORT INFORMATION
  Report Type: 
  Country: None (occurrence: None)
  Receive Date: 20071015
  Receipt Date: 20071004
  Transmission Date: 20080405
  Serious: Yes (Other)
  Sender: FDA-Public Use
  Company Number: US-ELI_LILLY_AND_COMPANY-US200601002001

PATIENT
  Sex: Female
  Weight: 108.84 kg

DRUGS (34)
  1. ZYPREXA [Suspect]
     Indication: BIPOLAR DISORDER
     Dosage: UNK, UNK
     Dates: start: 19960101
  2. ZYPREXA [Suspect]
     Dosage: 10 MG, UNK
  3. ZYPREXA [Suspect]
     Dosage: 20 MG, UNK
     Dates: start: 20031014
  4. HALDOL /SCH/ [Concomitant]
     Dosage: 100 MG, UNK
  5. DEPAKOTE [Concomitant]
     Dosage: 2000 MG, EACH EVENING
     Dates: start: 20031024
  6. DEPAKOTE [Concomitant]
     Dosage: 500 MG, 3/D
     Dates: start: 20031203
  7. DEPAKOTE [Concomitant]
     Dosage: 500 MG, EACH EVENING
  8. WELLBUTRIN XL [Concomitant]
     Dosage: 300 MG, DAILY (1/D)
     Dates: start: 20050526
  9. ABILIFY [Concomitant]
     Dosage: UNK, EACH EVENING
     Dates: start: 20060228
  10. LOTREL [Concomitant]
     Dosage: UNK, DAILY (1/D)
     Dates: end: 20041117
  11. LOTREL [Concomitant]
     Dates: start: 20050718, end: 20041117
  12. INDERAL [Concomitant]
     Dates: end: 20041117
  13. ZETIA [Concomitant]
     Dosage: 10 MG, DAILY (1/D)
     Dates: start: 20031103, end: 20040312
  14. ZOCOR [Concomitant]
     Dosage: 40 MG, EACH EVENING
     Dates: start: 20031103
  15. TRICOR [Concomitant]
     Dates: start: 20031103
  16. XOPENEX [Concomitant]
     Dosage: 1.25 MG, UNK
     Dates: start: 20031003
  17. LASIX [Concomitant]
     Dosage: 40 MG, UNK
     Dates: start: 20040719
  18. POTASSIUM CHLORIDE [Concomitant]
     Dosage: 10 MEQ, UNK
     Dates: start: 20040719
  19. COREG [Concomitant]
     Dosage: 6.25 MG, DAILY (1/D)
     Route: 048
     Dates: start: 20050325
  20. COREG [Concomitant]
     Dosage: 12.5 MG, 2/D
     Route: 048
     Dates: start: 20050413
  21. ZESTORETIC [Concomitant]
     Dosage: UNK, UNK
     Dates: start: 20050616, end: 20050718
  22. NITROGLYCERIN [Concomitant]
     Dosage: 0.4 UNK, AS NEEDED
     Route: 060
     Dates: start: 20050916
  23. NEURONTIN [Concomitant]
     Dosage: 100 MG, UNK
     Dates: start: 20031103
  24. RELAFEN [Concomitant]
     Dosage: 1500 MG, UNK
     Dates: start: 20030421
  25. VYTORIN [Concomitant]
     Dosage: UNK, DAILY (1/D)
     Dates: start: 20040910
  26. DITROPAN XL [Concomitant]
     Dosage: 15 MG, UNK
  27. DITROPAN XL [Concomitant]
     Dosage: 30 MG, UNK
     Dates: start: 20040312
  28. PREMARIN [Concomitant]
     Dosage: 1.25 MG, DAILY (1/D)
  29. ESTRADIOL [Concomitant]
     Dosage: 0.5 MG, EACH MORNING
     Dates: start: 20031103
  30. ASPIRIN [Concomitant]
     Dosage: 81 MG, UNK
     Dates: start: 20050525
  31. VICODIN ES [Concomitant]
  32. LOPID [Concomitant]
     Dosage: 600 MG, 2/D
     Dates: start: 20031103, end: 20031203
  33. LAMICTAL [Concomitant]
     Dosage: 25 MG, DAILY (1/D)
     Dates: start: 20040507
  34. BENICAR [Concomitant]
     Dates: start: 20041117, end: 20050325

REACTIONS (8)
  - BLOOD CHOLESTEROL INCREASED [None]
  - BLOOD URINE PRESENT [None]
  - HAEMORRHAGE [None]
  - LEFT VENTRICULAR DYSFUNCTION [None]
  - LIPIDS INCREASED [None]
  - NEUTROPHIL COUNT INCREASED [None]
  - TYPE 2 DIABETES MELLITUS [None]
  - WEIGHT INCREASED [None]
